FAERS Safety Report 19004857 (Version 1)
Quarter: 2021Q1

REPORT INFORMATION
  Report Type: Spontaneous
  Country: US (occurrence: US)
  Receive Date: 20210312
  Receipt Date: 20210312
  Transmission Date: 20210420
  Serious: Yes (Other)
  Sender: FDA-Public Use
  Company Number: US-SUNOVION-2021SUN000746

PATIENT
  Age: 47 Year
  Sex: Male

DRUGS (1)
  1. LONHALA MAGNAIR [Suspect]
     Active Substance: GLYCOPYRROLATE
     Dosage: 25 ?G, BID
     Route: 055

REACTIONS (4)
  - Dyspnoea [Unknown]
  - Loss of consciousness [Unknown]
  - Epistaxis [Unknown]
  - Therapy cessation [Unknown]
